FAERS Safety Report 8591749-8 (Version None)
Quarter: 2012Q3

REPORT INFORMATION
  Report Type: 
  Country: None (occurrence: None)
  Receive Date: 20120814
  Receipt Date: 20120803
  Transmission Date: 20120928
  Serious: Yes (Death, Other)
  Sender: FDA-Public Use
  Company Number: CO-MPIJNJ-2012-05494

PATIENT

DRUGS (2)
  1. DEXAMETHASONE [Concomitant]
  2. VELCADE [Suspect]
     Indication: MULTIPLE MYELOMA
     Dosage: 2.5 MG, CYCLIC
     Route: 065
     Dates: start: 20110524

REACTIONS (2)
  - DELUSION [None]
  - HYPOKALAEMIA [None]
